FAERS Safety Report 8088677-3 (Version None)
Quarter: 2012Q1

REPORT INFORMATION
  Report Type: 
  Country: None (occurrence: None)
  Receive Date: 20120128
  Receipt Date: 20110412
  Transmission Date: 20120608
  Serious: No
  Sender: FDA-Public Use
  Company Number: US-ABBOTT-11P-163-0718562-00

PATIENT
  Age: 62 Year
  Sex: Male

DRUGS (9)
  1. HUMIRA [Suspect]
     Indication: PSORIASIS
     Dates: start: 20100916
  2. EFFEXOR XT [Concomitant]
     Indication: ANXIETY DISORDER
  3. TRAZODONE HCL [Concomitant]
     Indication: INSOMNIA
     Dosage: AT BEDTIME
  4. BUSPAR [Concomitant]
     Indication: DEPRESSION
  5. KLONOPIN [Concomitant]
     Indication: ANXIETY
     Dosage: 1-2MG DAILY
  6. LASIX [Concomitant]
     Indication: PRODUCT USED FOR UNKNOWN INDICATION
  7. EFFEXOR XT [Concomitant]
     Indication: MAJOR DEPRESSION
  8. HUMIRA [Suspect]
  9. FINASTERIDE [Concomitant]
     Indication: PROSTATIC DISORDER

REACTIONS (1)
  - PSORIASIS [None]
